FAERS Safety Report 4537329-2 (Version None)
Quarter: 2004Q4

REPORT INFORMATION
  Report Type: 
  Country: None (occurrence: None)
  Receive Date: 20041223
  Receipt Date: 20041215
  Transmission Date: 20050328
  Serious: Yes (Other)
  Sender: FDA-Public Use
  Company Number: GBWYE285316DEC04

PATIENT
  Sex: Female
  Weight: 30 kg

DRUGS (2)
  1. ENBREL [Suspect]
     Indication: JUVENILE ARTHRITIS
     Route: 058
     Dates: start: 20020201, end: 20030306
  2. NAPROXEN [Concomitant]
     Indication: ANALGESIC EFFECT
     Route: 048
     Dates: start: 19971201, end: 20030306

REACTIONS (4)
  - ANXIETY [None]
  - INSOMNIA [None]
  - MOOD ALTERED [None]
  - PANIC ATTACK [None]
